FAERS Safety Report 16175220 (Version 1)
Quarter: 2019Q2

REPORT INFORMATION
  Report Type: Spontaneous
  Country: US (occurrence: US)
  Receive Date: 20190409
  Receipt Date: 20190409
  Transmission Date: 20190711
  Serious: No
  Sender: FDA-Public Use
  Company Number: US-PFIZER INC-2019147250

PATIENT
  Sex: Female

DRUGS (3)
  1. NYSTATIN. [Suspect]
     Active Substance: NYSTATIN
     Dosage: UNK
  2. XIFAXAN [Suspect]
     Active Substance: RIFAXIMIN
     Dosage: UNK
  3. CIPROFLOXACIN. [Suspect]
     Active Substance: CIPROFLOXACIN
     Dosage: UNK

REACTIONS (1)
  - Rash [Unknown]
